FAERS Safety Report 23028526 (Version 1)
Quarter: 2023Q4

REPORT INFORMATION
  Report Type: Spontaneous
  Country: US (occurrence: None)
  Receive Date: 20231004
  Receipt Date: 20231004
  Transmission Date: 20240109
  Serious: Yes (Hospitalization)
  Sender: FDA-Public Use
  Company Number: None

PATIENT
  Sex: Male

DRUGS (4)
  1. SIROLIMUS [Suspect]
     Active Substance: SIROLIMUS
     Indication: Renal transplant
     Route: 048
     Dates: start: 20181031
  2. LEVOFLOXACIN TAB 500MG [Concomitant]
  3. LEVOFLOXACIN TAB 100MCG [Concomitant]
  4. MULTIVITAMIN TAB MEN 50+ [Concomitant]

REACTIONS (2)
  - Pyrexia [None]
  - Therapy interrupted [None]
